FAERS Safety Report 13596976 (Version 1)
Quarter: 2017Q2

REPORT INFORMATION
  Report Type: Spontaneous
  Country: US (occurrence: US)
  Receive Date: 20170530
  Receipt Date: 20170530
  Transmission Date: 20170830
  Serious: Yes (Hospitalization)
  Sender: FDA-Public Use
  Company Number: None

PATIENT
  Age: 60 Year
  Sex: Male

DRUGS (1)
  1. METHADONE [Suspect]
     Active Substance: METHADONE HYDROCHLORIDE
     Indication: DRUG USE DISORDER
     Route: 048
     Dates: start: 20110615

REACTIONS (10)
  - Somnolence [None]
  - Head injury [None]
  - Fall [None]
  - Dyspnoea [None]
  - Sedation [None]
  - Pyrexia [None]
  - Unresponsive to stimuli [None]
  - Haemorrhage [None]
  - Mental status changes [None]
  - Dizziness [None]

NARRATIVE: CASE EVENT DATE: 20170521
